FAERS Safety Report 17030849 (Version 1)
Quarter: 2019Q4

REPORT INFORMATION
  Report Type: Spontaneous
  Country: AU (occurrence: AU)
  Receive Date: 20191114
  Receipt Date: 20191114
  Transmission Date: 20200122
  Serious: Yes (Other)
  Sender: FDA-Public Use
  Company Number: NVSC2019AU032498

PATIENT
  Age: 47 Year
  Sex: Male

DRUGS (1)
  1. COSENTYX [Suspect]
     Active Substance: SECUKINUMAB
     Indication: PRODUCT USED FOR UNKNOWN INDICATION
     Dosage: UNK
     Route: 065

REACTIONS (12)
  - Gait disturbance [Unknown]
  - Visual impairment [Unknown]
  - Tremor [Unknown]
  - Epistaxis [Unknown]
  - Myalgia [Unknown]
  - Memory impairment [Unknown]
  - Suicidal ideation [Unknown]
  - Vomiting [Unknown]
  - Depression [Unknown]
  - Swelling [Unknown]
  - Anxiety [Unknown]
  - Pain [Unknown]
